FAERS Safety Report 8047796-8 (Version None)
Quarter: 2012Q1

REPORT INFORMATION
  Report Type: 
  Country: None (occurrence: None)
  Receive Date: 20120116
  Receipt Date: 20120109
  Transmission Date: 20120608
  Serious: Yes (Other)
  Sender: FDA-Public Use
  Company Number: PHHY2012FI001965

PATIENT
  Age: 35 Year
  Sex: Male

DRUGS (5)
  1. CLOZAPINE [Suspect]
  2. CISORDINOL [Concomitant]
     Dosage: 25 MG, BID
  3. VALPROIC ACID [Concomitant]
  4. TERBINAFINE HCL [Interacting]
     Indication: ONYCHOMYCOSIS
     Dosage: 3-MONTHS COURSE
     Dates: start: 20110101
  5. RIVATRIL [Concomitant]

REACTIONS (5)
  - DRUG INTERACTION [None]
  - MENTAL DISORDER [None]
  - DELUSION [None]
  - HALLUCINATION [None]
  - ONYCHOMYCOSIS [None]
